FAERS Safety Report 12156525 (Version 5)
Quarter: 2016Q3

REPORT INFORMATION
  Report Type: Report from Study
  Country: JP (occurrence: JP)
  Receive Date: 20160307
  Receipt Date: 20160914
  Transmission Date: 20161109
  Serious: Yes (Hospitalization)
  Sender: FDA-Public Use
  Company Number: JP-EISAI MEDICAL RESEARCH-EC-2016-014989

PATIENT
  Age: 67 Year
  Sex: Male
  Weight: 62 kg

DRUGS (14)
  1. OXYCONTIN [Concomitant]
     Active Substance: OXYCODONE HYDROCHLORIDE
  2. SENNOSIDE [Concomitant]
     Active Substance: SENNOSIDES
  3. ALDACTONE [Concomitant]
     Active Substance: SPIRONOLACTONE
  4. NEXIUM [Concomitant]
     Active Substance: ESOMEPRAZOLE MAGNESIUM
  5. OXINORM [Concomitant]
     Active Substance: OXYCODONE HYDROCHLORIDE
  6. CEFCAPENE PIVOXIL HYDROCHLORIDE HYDRATE [Concomitant]
     Active Substance: CEFCAPENE PIVOXIL HYDROCHLORIDE HYDRATE
     Indication: CHOLANGITIS
     Dates: start: 20160229
  7. LOXOPROFEN [Concomitant]
     Active Substance: LOXOPROFEN
  8. CALONAL [Concomitant]
     Active Substance: ACETAMINOPHEN
  9. THYRADIN S [Concomitant]
     Active Substance: LEVOTHYROXINE SODIUM
  10. FUROSEMIDE. [Concomitant]
     Active Substance: FUROSEMIDE
  11. NOVAMIN [Concomitant]
     Active Substance: PROCHLORPERAZINE MALEATE
     Indication: PROPHYLAXIS OF NAUSEA AND VOMITING
     Dates: start: 20160229
  12. PASTARON [Concomitant]
     Active Substance: UREA
  13. CANDESARTAN [Concomitant]
     Active Substance: CANDESARTAN
  14. LENVATINIB [Suspect]
     Active Substance: LENVATINIB
     Indication: BILE DUCT CANCER
     Route: 048
     Dates: start: 20160218, end: 20160302

REACTIONS (2)
  - Erythema multiforme [Recovered/Resolved]
  - Decreased appetite [Recovered/Resolved]

NARRATIVE: CASE EVENT DATE: 20160303
